FAERS Safety Report 8451941-X (Version None)
Quarter: 2012Q2

REPORT INFORMATION
  Report Type: 
  Country: None (occurrence: None)
  Receive Date: 20120620
  Receipt Date: 20120425
  Transmission Date: 20120825
  Serious: No
  Sender: FDA-Public Use
  Company Number: US-VERTEX PHARMACEUTICALS INC.-AE-2012-004321

PATIENT
  Sex: Male
  Weight: 104.42 kg

DRUGS (5)
  1. PEGASYS [Concomitant]
     Indication: HEPATITIS C
     Route: 058
     Dates: start: 20120305
  2. MULTI-VITAMIN [Concomitant]
  3. VITAMIN D [Concomitant]
  4. INCIVEK [Suspect]
     Indication: HEPATITIS C
     Route: 048
     Dates: start: 20120305
  5. RIBAVIRIN [Concomitant]
     Indication: HEPATITIS C
     Route: 048
     Dates: start: 20120305

REACTIONS (6)
  - BLOOD CHOLESTEROL INCREASED [None]
  - PROCTALGIA [None]
  - HAEMORRHOIDS [None]
  - DIARRHOEA [None]
  - PLATELET COUNT DECREASED [None]
  - PRURITUS [None]
